FAERS Safety Report 24711419 (Version 1)
Quarter: 2024Q4

REPORT INFORMATION
  Report Type: Spontaneous
  Country: US (occurrence: None)
  Receive Date: 20241207
  Receipt Date: 20241207
  Transmission Date: 20250115
  Serious: Yes (Hospitalization)
  Sender: Public
  Company Number: None

PATIENT
  Sex: Female

DRUGS (2)
  1. GAMMAGARD LIQUID [Suspect]
     Active Substance: HUMAN IMMUNOGLOBULIN G
     Indication: Immunodeficiency common variable
     Dosage: 16 GM  EVERY 2 WEKS SUBCUTANEOUSLY
     Route: 058
     Dates: start: 202111
  2. BUMEX [Concomitant]
     Active Substance: BUMETANIDE

REACTIONS (5)
  - Bronchitis [None]
  - Pneumonia [None]
  - Cellulitis [None]
  - Blood glucose increased [None]
  - Thirst [None]
